FAERS Safety Report 8739683 (Version 2)
Quarter: 2012Q4

REPORT INFORMATION
  Report Type: Report from Study
  Country: US (occurrence: None)
  Receive Date: 20120807
  Receipt Date: 20120910
  Transmission Date: 20130627
  Serious: Yes (Hospitalization)
  Sender: FDA-Public Use
  Company Number: 2012SGN00329

PATIENT
  Age: 28 Year
  Sex: Male
  Weight: 107.9 kg

DRUGS (8)
  1. BRENTUXIMAB VEDOTIN [Suspect]
     Indication: HODGKIN^S DISEASE
     Dosage: 1.2 MG/KG
     Dates: start: 20120614, end: 20120712
  2. DOXORUBICIN [Suspect]
     Indication: HODGKIN^S DISEASE
     Dosage: 375 MG/M2
  3. VINBLASTINE SULFATE [Suspect]
     Indication: HODGKIN^S DISEASE
     Dosage: 6 MG/M2
     Dates: start: 20120712, end: 20120712
  4. DACARBAZINE [Suspect]
     Indication: HODGKIN^S LYMPHOMA
     Dosage: 25 MG/M2
     Dates: start: 20120712, end: 20120712
  5. COMPAZINE [Concomitant]
  6. LORAZEPAM [Concomitant]
  7. ONDANSETRON [Concomitant]
  8. PERCOCET [Concomitant]

REACTIONS (1)
  - Febrile neutropenia [None]
